FAERS Safety Report 23953181 (Version 2)
Quarter: 2024Q3

REPORT INFORMATION
  Report Type: Spontaneous
  Country: US (occurrence: US)
  Receive Date: 20240608
  Receipt Date: 20240726
  Transmission Date: 20241017
  Serious: Yes (Disabling, Other)
  Sender: AMGEN
  Company Number: US-AMGEN-USASP2024109588

PATIENT
  Sex: Female

DRUGS (3)
  1. TEPEZZA [Suspect]
     Active Substance: TEPROTUMUMAB-TRBW
     Indication: Endocrine ophthalmopathy
     Dosage: UNK
     Route: 042
     Dates: start: 202201, end: 202206
  2. TEPEZZA [Suspect]
     Active Substance: TEPROTUMUMAB-TRBW
     Indication: Graves^ disease
  3. TAPAZOLE [Concomitant]
     Active Substance: METHIMAZOLE
     Dosage: 5 MILLIGRAM
     Route: 065

REACTIONS (12)
  - Deafness neurosensory [Not Recovered/Not Resolved]
  - Physical disability [Unknown]
  - Endocrine ophthalmopathy [Unknown]
  - Graves^ disease [Unknown]
  - Physical product label issue [Unknown]
  - Impaired quality of life [Unknown]
  - Pain [Unknown]
  - Anxiety [Unknown]
  - Discomfort [Unknown]
  - Emotional distress [Unknown]
  - Cerumen impaction [Unknown]
  - Excessive cerumen production [Unknown]
